FAERS Safety Report 5032932-8 (Version None)
Quarter: 2006Q2

REPORT INFORMATION
  Report Type: 
  Country: None (occurrence: None)
  Receive Date: 20060622
  Receipt Date: 20060614
  Transmission Date: 20061013
  Serious: Yes (Death)
  Sender: FDA-Public Use
  Company Number: US-SANOFI-SYNTHELABO-A03200603874

PATIENT
  Sex: Male

DRUGS (3)
  1. AMIODARONE HCL [Concomitant]
     Dosage: UNK
     Route: 048
  2. COUMADIN [Suspect]
     Route: 048
     Dates: start: 20050101
  3. PLAVIX [Suspect]
     Indication: MYOCARDIAL INFARCTION
     Route: 048
     Dates: start: 20050101

REACTIONS (4)
  - ARRHYTHMIA [None]
  - INTERNATIONAL NORMALISED RATIO FLUCTUATION [None]
  - SUDDEN DEATH [None]
  - TREATMENT NONCOMPLIANCE [None]
